FAERS Safety Report 10279350 (Version 4)
Quarter: 2014Q4

REPORT INFORMATION
  Report Type: Spontaneous
  Country: US (occurrence: US)
  Receive Date: 20140707
  Receipt Date: 20141208
  Transmission Date: 20150528
  Serious: Yes (Hospitalization, Other)
  Sender: FDA-Public Use
  Company Number: US-AMGEN-USASP2014050165

PATIENT
  Age: 0 Day
  Sex: Female
  Weight: 2.49 kg

DRUGS (3)
  1. ENBREL [Suspect]
     Active Substance: ETANERCEPT
     Indication: EXPOSURE DURING PREGNANCY
     Dosage: 50 MG, QWK
     Route: 064
     Dates: start: 201310, end: 201312
  2. PREDNISONE. [Concomitant]
     Active Substance: PREDNISONE
     Indication: RHEUMATOID ARTHRITIS
     Dosage: 10 MG, QD
     Route: 064
     Dates: start: 201403
  3. FOLIC ACID. [Concomitant]
     Active Substance: FOLIC ACID
     Indication: PREGNANCY
     Dosage: 1 TAB DAILY
     Route: 064
     Dates: start: 201401

REACTIONS (2)
  - Premature baby [Recovered/Resolved]
  - Dyspnoea [Unknown]

NARRATIVE: CASE EVENT DATE: 20140629
